FAERS Safety Report 24736027 (Version 1)
Quarter: 2024Q4

REPORT INFORMATION
  Report Type: Other
  Country: FI (occurrence: FI)
  Receive Date: 20241216
  Receipt Date: 20241216
  Transmission Date: 20250115
  Serious: Yes (Hospitalization, Other)
  Sender: ASPEN
  Company Number: FI-JNJFOC-20241167909

PATIENT

DRUGS (3)
  1. DEXAMETHASONE [Suspect]
     Active Substance: DEXAMETHASONE
     Indication: Plasma cell myeloma
     Dosage: 2018-06-12 14:36:45/2
     Route: 065
     Dates: start: 202308
  2. DARATUMUMAB [Suspect]
     Active Substance: DARATUMUMAB
     Indication: Plasma cell myeloma
     Dosage: 2016-03-30 04:12:26/2
     Route: 065
     Dates: start: 202308
  3. CARFILZOMIB [Suspect]
     Active Substance: CARFILZOMIB
     Indication: Plasma cell myeloma
     Dosage: 2018-06-12 14:36:45/2
     Route: 065
     Dates: start: 202308

REACTIONS (3)
  - Cytopenia [Unknown]
  - Pneumonia viral [Unknown]
  - Thrombocytopenia [Unknown]
